FAERS Safety Report 26033437 (Version 1)
Quarter: 2025Q4

REPORT INFORMATION
  Report Type: Spontaneous
  Country: US (occurrence: US)
  Receive Date: 20251112
  Receipt Date: 20251112
  Transmission Date: 20260118
  Serious: Yes (Hospitalization)
  Sender: Onesource Specialty Pharma
  Company Number: US-STRIDES ARCOLAB LIMITED-2025OS001158

PATIENT
  Age: 13 Year
  Sex: Male

DRUGS (6)
  1. GANCICLOVIR SODIUM [Suspect]
     Active Substance: GANCICLOVIR SODIUM
     Indication: Cytomegalovirus infection
     Dosage: UNK
     Route: 042
  2. GANCICLOVIR SODIUM [Suspect]
     Active Substance: GANCICLOVIR SODIUM
     Dosage: UNK
     Route: 042
  3. VALGANCICLOVIR [Concomitant]
     Active Substance: VALGANCICLOVIR
     Indication: Cytomegalovirus infection
     Dosage: UNK
     Route: 065
  4. SOLU-MEDROL [Concomitant]
     Active Substance: METHYLPREDNISOLONE SODIUM SUCCINATE
     Indication: Immunosuppressant drug therapy
     Dosage: UNK
     Route: 065
  5. Immunoglobulin [Concomitant]
     Indication: Immunosuppressant drug therapy
     Dosage: UNK
     Route: 065
  6. THYMOCYTE IMMUNE GLOBULIN NOS [Concomitant]
     Active Substance: THYMOCYTE IMMUNE GLOBULIN NOS
     Indication: Immunosuppressant drug therapy
     Dosage: UNK
     Route: 065

REACTIONS (2)
  - Drug resistance [Unknown]
  - Off label use [Unknown]
